FAERS Safety Report 7967976-7 (Version None)
Quarter: 2011Q4

REPORT INFORMATION
  Report Type: 
  Country: None (occurrence: None)
  Receive Date: 20111209
  Receipt Date: 20111205
  Transmission Date: 20120403
  Serious: Yes (Other)
  Sender: FDA-Public Use
  Company Number: US-SANOFI-AVENTIS-2011SA079947

PATIENT
  Age: 63 Year
  Sex: Female

DRUGS (2)
  1. LANTUS [Suspect]
     Dosage: 40 UNITS IN THE AM AND 20 UNITS IN THE PM
     Route: 058
  2. SOLOSTAR [Suspect]

REACTIONS (1)
  - MULTIPLE MYELOMA [None]
